FAERS Safety Report 18300815 (Version 1)
Quarter: 2020Q3

REPORT INFORMATION
  Report Type: Report from Study
  Country: ES (occurrence: ES)
  Receive Date: 20200923
  Receipt Date: 20200923
  Transmission Date: 20201103
  Serious: Yes (Death, Hospitalization, Other)
  Sender: FDA-Public Use
  Company Number: ES-PFIZER INC-2020361656

PATIENT
  Age: 58 Year
  Sex: Male

DRUGS (2)
  1. GEMCITABINE HYDROCHLORIDE. [Suspect]
     Active Substance: GEMCITABINE HYDROCHLORIDE
     Indication: PANCREATIC CARCINOMA METASTATIC
     Dosage: 700 MG/M2, CYCLIC (WK FOR 3 CONSECUTIVE WKS EVERY 4 WKS) (ESCALATED IN INCREMENTS OF 100 MG/M2/WK)
  2. FLUOROURACIL. [Suspect]
     Active Substance: FLUOROURACIL
     Indication: PANCREATIC CARCINOMA METASTATIC
     Dosage: 200 MG/M2, DAILY (FIXED DOSAGE)

REACTIONS (4)
  - Neutropenia [Unknown]
  - Septic shock [Fatal]
  - Bacteraemia [Unknown]
  - Pyrexia [Unknown]
